FAERS Safety Report 17789421 (Version 2)
Quarter: 2022Q4

REPORT INFORMATION
  Report Type: Spontaneous
  Country: CA (occurrence: None)
  Receive Date: 20200515
  Receipt Date: 20221207
  Transmission Date: 20230113
  Serious: Yes (Hospitalization)
  Sender: FDA-Public Use
  Company Number: CA-ROCHE-2596530

PATIENT
  Sex: Female
  Weight: 95 kg

DRUGS (30)
  1. RITUXIMAB [Suspect]
     Active Substance: RITUXIMAB
     Indication: Systemic lupus erythematosus
     Route: 041
  2. RITUXIMAB [Suspect]
     Active Substance: RITUXIMAB
     Indication: Pneumonitis
  3. GRAVOL [Suspect]
     Active Substance: DIMENHYDRINATE
     Indication: Product used for unknown indication
     Route: 065
  4. ONDANSETRON [Suspect]
     Active Substance: ONDANSETRON
     Indication: Product used for unknown indication
     Route: 065
  5. PREDNISONE [Suspect]
     Active Substance: PREDNISONE
     Indication: Product used for unknown indication
     Route: 065
  6. PREDNISONE [Suspect]
     Active Substance: PREDNISONE
     Route: 048
  7. PREDNISONE [Suspect]
     Active Substance: PREDNISONE
     Route: 065
  8. PREGABALIN [Suspect]
     Active Substance: PREGABALIN
     Indication: Pain
     Route: 065
  9. RITUXIMAB [Suspect]
     Active Substance: RITUXIMAB
     Indication: Systemic lupus erythematosus
     Route: 065
  10. RITUXIMAB [Suspect]
     Active Substance: RITUXIMAB
     Indication: Pneumonitis
     Route: 042
  11. RITUXIMAB [Suspect]
     Active Substance: RITUXIMAB
     Route: 042
  12. RITUXIMAB [Suspect]
     Active Substance: RITUXIMAB
     Route: 042
  13. WARFARIN [Suspect]
     Active Substance: WARFARIN
     Indication: Product used for unknown indication
     Route: 065
  14. WARFARIN [Suspect]
     Active Substance: WARFARIN
     Route: 065
  15. WARFARIN [Concomitant]
     Active Substance: WARFARIN
     Route: 065
  16. OXYCONTIN [Concomitant]
     Active Substance: OXYCODONE HYDROCHLORIDE
     Route: 065
  17. NEXIUM [Concomitant]
     Active Substance: ESOMEPRAZOLE MAGNESIUM
     Route: 065
  18. METHYLPREDNISOLONE [Concomitant]
     Active Substance: METHYLPREDNISOLONE
     Route: 042
  19. HYDROXYCHLOROQUINE [Concomitant]
     Active Substance: HYDROXYCHLOROQUINE
     Route: 048
  20. FENTANYL [Concomitant]
     Active Substance: FENTANYL
     Route: 065
  21. DIPHENHYDRAMINE HYDROCHLORIDE [Concomitant]
     Active Substance: DIPHENHYDRAMINE HYDROCHLORIDE
     Route: 048
  22. ACETAMINOPHEN [Concomitant]
     Active Substance: ACETAMINOPHEN
     Route: 048
  23. AMITRIPTYLINE [Concomitant]
     Active Substance: AMITRIPTYLINE
     Route: 065
  24. DIPHENHYDRAMINE HYDROCHLORIDE [Concomitant]
     Active Substance: DIPHENHYDRAMINE HYDROCHLORIDE
     Indication: Premedication
     Route: 048
  25. ESOMEPRAZOLE [Concomitant]
     Active Substance: ESOMEPRAZOLE
     Route: 065
  26. ESOMEPRAZOLE SODIUM [Concomitant]
     Active Substance: ESOMEPRAZOLE SODIUM
  27. FENTANYL [Concomitant]
     Active Substance: FENTANYL
  28. METHADONE [Concomitant]
     Active Substance: METHADONE HYDROCHLORIDE
     Indication: Neuralgia
  29. METOPROLOL [Concomitant]
     Active Substance: METOPROLOL
     Indication: Blood pressure measurement
  30. NAPROXEN [Concomitant]
     Active Substance: NAPROXEN

REACTIONS (14)
  - Heart rate increased [Not Recovered/Not Resolved]
  - Pain [Not Recovered/Not Resolved]
  - Ulcer [Not Recovered/Not Resolved]
  - Weight increased [Not Recovered/Not Resolved]
  - Antiphospholipid syndrome [Not Recovered/Not Resolved]
  - Cerebrovascular accident [Not Recovered/Not Resolved]
  - Haematuria [Not Recovered/Not Resolved]
  - Hypotension [Not Recovered/Not Resolved]
  - Malaise [Not Recovered/Not Resolved]
  - Myelitis transverse [Not Recovered/Not Resolved]
  - Off label use [Unknown]
  - Paralysis [Not Recovered/Not Resolved]
  - Total lung capacity decreased [Not Recovered/Not Resolved]
  - White blood cell count decreased [Not Recovered/Not Resolved]
